FAERS Safety Report 6355584-3 (Version None)
Quarter: 2009Q3

REPORT INFORMATION
  Report Type: 
  Country: None (occurrence: None)
  Receive Date: 20090910
  Receipt Date: 20090828
  Transmission Date: 20100115
  Serious: Yes (Hospitalization)
  Sender: FDA-Public Use
  Company Number: 2007-152597-NL

PATIENT
  Age: 23 Year
  Sex: Female
  Weight: 73.9 kg

DRUGS (2)
  1. NUVARING [Suspect]
     Indication: CONTRACEPTION
     Dosage: ; VAG
     Route: 067
     Dates: start: 20050101
  2. NEXIUM [Concomitant]

REACTIONS (32)
  - CHEST DISCOMFORT [None]
  - COGNITIVE DISORDER [None]
  - CONTUSION [None]
  - COUGH [None]
  - DECREASED ACTIVITY [None]
  - DISEASE RECURRENCE [None]
  - DYSPNOEA EXERTIONAL [None]
  - DYSTHYMIC DISORDER [None]
  - ECONOMIC PROBLEM [None]
  - FATIGUE [None]
  - HERPES SIMPLEX [None]
  - HYPERCOAGULATION [None]
  - ILIAC ARTERY STENOSIS [None]
  - INTERMITTENT CLAUDICATION [None]
  - ISCHAEMIC CARDIOMYOPATHY [None]
  - LEFT VENTRICULAR DYSFUNCTION [None]
  - LIMB DISCOMFORT [None]
  - MAJOR DEPRESSION [None]
  - MITRAL VALVE INCOMPETENCE [None]
  - MUSCLE SPASMS [None]
  - MUSCLE STRAIN [None]
  - MYOCARDIAL INFARCTION [None]
  - PALPITATIONS [None]
  - PANIC DISORDER [None]
  - PERICARDIAL EFFUSION [None]
  - PERIPHERAL VASCULAR DISORDER [None]
  - REFUSAL OF TREATMENT BY PATIENT [None]
  - ROAD TRAFFIC ACCIDENT [None]
  - SINUS TACHYCARDIA [None]
  - THROMBOSIS [None]
  - TRICUSPID VALVE INCOMPETENCE [None]
  - UTERINE DILATION AND CURETTAGE [None]
